FAERS Safety Report 4421371-6 (Version None)
Quarter: 2004Q3

REPORT INFORMATION
  Report Type: 
  Country: None (occurrence: None)
  Receive Date: 20040804
  Receipt Date: 20040723
  Transmission Date: 20050211
  Serious: Yes (Death)
  Sender: FDA-Public Use
  Company Number: 2004224122FR

PATIENT
  Age: 75 Year
  Sex: Male

DRUGS (7)
  1. CYTARABINE [Suspect]
     Indication: ACUTE MYELOID LEUKAEMIA
     Dosage: CYCLIC
     Dates: start: 20031202, end: 20031202
  2. ZAVEDOS (IDARUBICIN HYDROCHLORIDE) POWDER, STERILE [Suspect]
     Indication: ACUTE MYELOID LEUKAEMIA
     Dates: start: 20031202, end: 20031202
  3. BELUSTINE (LOMUSTINE) [Suspect]
     Indication: ACUTE MYELOID LEUKAEMIA
     Dosage: ORAL
     Route: 048
     Dates: start: 20031202, end: 20031202
  4. NILEVAR [Suspect]
     Indication: ACUTE MYELOID LEUKAEMIA
     Dosage: ORAL
     Route: 048
     Dates: start: 20030215, end: 20031215
  5. SPORANOX [Suspect]
     Indication: ACUTE MYELOID LEUKAEMIA
     Dosage: 100 MG, ORAL
     Route: 048
     Dates: start: 20030215, end: 20031215
  6. PURINETHOL [Concomitant]
  7. METHOTREXATE [Concomitant]

REACTIONS (7)
  - AGRANULOCYTOSIS [None]
  - CYTOLYTIC HEPATITIS [None]
  - GENERAL PHYSICAL HEALTH DETERIORATION [None]
  - HEPATOTOXICITY [None]
  - INSOMNIA [None]
  - PANCYTOPENIA [None]
  - TUMOUR LYSIS SYNDROME [None]
